FAERS Safety Report 7150235-2 (Version None)
Quarter: 2010Q4

REPORT INFORMATION
  Report Type: 
  Country: None (occurrence: None)
  Receive Date: 20101126
  Receipt Date: 20101122
  Transmission Date: 20110411
  Serious: Yes (Other)
  Sender: FDA-Public Use
  Company Number: DSA_42814_2010

PATIENT
  Sex: Female

DRUGS (19)
  1. XENAZINE [Suspect]
     Indication: DYSKINESIA
     Dosage: (25 MG TID ORAL)
     Route: 048
     Dates: start: 20090501
  2. HALDOL [Concomitant]
  3. LYRICA [Concomitant]
  4. SYNTHROID [Concomitant]
  5. DIOVAN HCT [Concomitant]
  6. METFORMIN [Concomitant]
  7. TRAZODONE HCL [Concomitant]
  8. VICTOZA [Concomitant]
  9. AMANTADINE [Concomitant]
  10. CITALOPRAM [Concomitant]
  11. CLONIDINE [Concomitant]
  12. GLIMEPIRIDE [Concomitant]
  13. NOVOLOG [Concomitant]
  14. PRAVASTATIN [Concomitant]
  15. BENADRYL [Concomitant]
  16. CLARITIN /00917501/ [Concomitant]
  17. ASPIRIN [Concomitant]
  18. IMODIUM [Concomitant]
  19. ACTOS [Concomitant]

REACTIONS (4)
  - ABNORMAL BEHAVIOUR [None]
  - AGITATION [None]
  - DECREASED INTEREST [None]
  - HALLUCINATIONS, MIXED [None]
